FAERS Safety Report 6241691-2 (Version None)
Quarter: 2009Q2

REPORT INFORMATION
  Report Type: 
  Country: None (occurrence: None)
  Receive Date: 20090623
  Receipt Date: 20090611
  Transmission Date: 20091009
  Serious: Yes (Other)
  Sender: FDA-Public Use
  Company Number: GB-ELI_LILLY_AND_COMPANY-GB200906002813

PATIENT
  Sex: Male
  Weight: 38.3 kg

DRUGS (2)
  1. STRATTERA [Suspect]
     Indication: ATTENTION DEFICIT/HYPERACTIVITY DISORDER
     Dosage: 60 MG, DAILY (1/D)
     Route: 048
     Dates: start: 20080903, end: 20090210
  2. EQUASYM [Concomitant]

REACTIONS (4)
  - MOOD ALTERED [None]
  - MORBID THOUGHTS [None]
  - RASH [None]
  - URINARY HESITATION [None]
